FAERS Safety Report 24547167 (Version 1)
Quarter: 2024Q4

REPORT INFORMATION
  Report Type: Spontaneous
  Country: PL (occurrence: PL)
  Receive Date: 20241025
  Receipt Date: 20241025
  Transmission Date: 20250114
  Serious: Yes (Hospitalization)
  Sender: JOHNSON AND JOHNSON
  Company Number: PL-JNJFOC-20241056177

PATIENT
  Age: 23 Year
  Sex: Male

DRUGS (1)
  1. SPRAVATO [Suspect]
     Active Substance: ESKETAMINE
     Indication: Depression
     Dosage: THROUGHOUT THE TREATMENT PERIOD HE RECEIVED A DOSE OF 56 MG OF THE PREPARATION.
     Dates: start: 20240117

REACTIONS (2)
  - Urosepsis [Unknown]
  - Somnolence [Recovered/Resolved]

NARRATIVE: CASE EVENT DATE: 20240101
